FAERS Safety Report 21943225 (Version 1)
Quarter: 2023Q1

REPORT INFORMATION
  Report Type: Spontaneous
  Country: US (occurrence: US)
  Receive Date: 20230202
  Receipt Date: 20230202
  Transmission Date: 20230418
  Serious: Yes (Hospitalization, Other)
  Sender: FDA-Public Use
  Company Number: US-BRISTOL-MYERS SQUIBB COMPANY-2023-014088

PATIENT
  Age: 87 Year
  Sex: Male

DRUGS (1)
  1. REVLIMID [Suspect]
     Active Substance: LENALIDOMIDE
     Indication: Product used for unknown indication
     Dosage: 10MG FOR 21 DAYS ON 7, DAILY
     Route: 048
     Dates: start: 201906

REACTIONS (2)
  - Skin laceration [Unknown]
  - Hip fracture [Unknown]

NARRATIVE: CASE EVENT DATE: 20230125
